FAERS Safety Report 22055341 (Version 3)
Quarter: 2023Q2

REPORT INFORMATION
  Report Type: Spontaneous
  Country: JP (occurrence: JP)
  Receive Date: 20230302
  Receipt Date: 20230504
  Transmission Date: 20230722
  Serious: Yes (Death, Other)
  Sender: FDA-Public Use
  Company Number: A202300141-001

PATIENT
  Age: 72 Year
  Sex: Female
  Weight: 50 kg

DRUGS (22)
  1. BENDAMUSTINE HYDROCHLORIDE [Suspect]
     Active Substance: BENDAMUSTINE HYDROCHLORIDE
     Indication: Follicular lymphoma
     Dosage: 90 MG/M2, CYCLE 1 GB THERAPY
     Route: 042
     Dates: start: 20210831
  2. BENDAMUSTINE HYDROCHLORIDE [Suspect]
     Active Substance: BENDAMUSTINE HYDROCHLORIDE
     Dosage: 90 MG/M2, CYCLE 2 GB THERAPY
     Route: 042
     Dates: start: 20210929
  3. BENDAMUSTINE HYDROCHLORIDE [Suspect]
     Active Substance: BENDAMUSTINE HYDROCHLORIDE
     Dosage: 90 MG/M2, CYCLE 3 GB THERAPY
     Route: 042
     Dates: start: 20211027
  4. BENDAMUSTINE HYDROCHLORIDE [Suspect]
     Active Substance: BENDAMUSTINE HYDROCHLORIDE
     Dosage: 90 MG/M2, CYCLE 4 GB THERAPY
     Route: 042
     Dates: start: 20211124
  5. BENDAMUSTINE HYDROCHLORIDE [Suspect]
     Active Substance: BENDAMUSTINE HYDROCHLORIDE
     Dosage: 90 MG/M2, CYCLE 5 GB THERAPY
     Route: 042
     Dates: start: 20211222
  6. BENDAMUSTINE HYDROCHLORIDE [Suspect]
     Active Substance: BENDAMUSTINE HYDROCHLORIDE
     Dosage: 90 MG/M2, CYCLE 6 GB THERAPY
     Route: 042
     Dates: start: 20220131
  7. GAZYVA [Suspect]
     Active Substance: OBINUTUZUMAB
     Indication: Follicular lymphoma
     Dosage: 1000 MG, CYCLE 1 GB THERAPY
     Route: 042
     Dates: start: 20210830
  8. GAZYVA [Suspect]
     Active Substance: OBINUTUZUMAB
     Dosage: 1000 MG, CYCLE 2 GB THERAPY
     Route: 042
     Dates: start: 20210929
  9. GAZYVA [Suspect]
     Active Substance: OBINUTUZUMAB
     Dosage: 1000 MG, CYCLE 3 GB THERAPY
     Route: 042
     Dates: start: 20211027
  10. GAZYVA [Suspect]
     Active Substance: OBINUTUZUMAB
     Dosage: 1000 MG, CYCLE 4 GB THERAPY
     Route: 042
     Dates: start: 20211124
  11. GAZYVA [Suspect]
     Active Substance: OBINUTUZUMAB
     Dosage: 1000 MG, CYCLE 5 GB THERAPY
     Route: 042
     Dates: start: 20211222
  12. GAZYVA [Suspect]
     Active Substance: OBINUTUZUMAB
     Dosage: 1000 MG, CYCLE 6 GB THERAPY
     Route: 042
     Dates: start: 20220131
  13. GAZYVA [Suspect]
     Active Substance: OBINUTUZUMAB
     Dosage: 1000 MG, CYCLE 1 MAINTENANCE THERAPY
     Route: 042
     Dates: start: 20211222
  14. GAZYVA [Suspect]
     Active Substance: OBINUTUZUMAB
     Dosage: 1000 MG, CYCLE 2 MAINTENANCE THERAPY
     Route: 042
     Dates: start: 20220131
  15. GAZYVA [Suspect]
     Active Substance: OBINUTUZUMAB
     Dosage: 1000 MG, CYCLE 3 MAINTENANCE THERAPY
     Route: 042
     Dates: start: 20220330
  16. GAZYVA [Suspect]
     Active Substance: OBINUTUZUMAB
     Dosage: 1000 MG, CYCLE 4 MAINTENANCE THERAPY
     Route: 042
     Dates: start: 20220525
  17. GAZYVA [Suspect]
     Active Substance: OBINUTUZUMAB
     Dosage: 1000 MG, CYCLE 5 MAINTENANCE THERAPY
     Route: 042
     Dates: start: 20220720
  18. GAZYVA [Suspect]
     Active Substance: OBINUTUZUMAB
     Dosage: 1000 MG, CYCLE 6 MAINTENANCE THERAPY
     Route: 042
     Dates: start: 20220914
  19. RABEPRAZOLE SODIUM [Concomitant]
     Active Substance: RABEPRAZOLE SODIUM
     Indication: Prophylaxis against gastrointestinal ulcer
     Dosage: 10 MG, QD
     Route: 048
     Dates: start: 20210828
  20. BROTIZOLAM [Concomitant]
     Active Substance: BROTIZOLAM
     Indication: Product used for unknown indication
     Dosage: 0.25 MG, QD
     Route: 048
     Dates: start: 20200907
  21. AMLODIPINE (ALS BESILAAT) SANDOZ [Concomitant]
     Indication: Hypertension
     Dosage: 5 MG, QD
     Route: 048
     Dates: start: 20210719
  22. HERBALS [Concomitant]
     Active Substance: HERBALS
     Indication: Constipation
     Dosage: 2.5 G, Q8H
     Route: 048

REACTIONS (2)
  - COVID-19 pneumonia [Fatal]
  - Neutrophil count decreased [Recovering/Resolving]

NARRATIVE: CASE EVENT DATE: 20220119
